FAERS Safety Report 12673876 (Version 1)
Quarter: 2016Q3

REPORT INFORMATION
  Report Type: Spontaneous
  Country: FR (occurrence: FR)
  Receive Date: 20160822
  Receipt Date: 20160822
  Transmission Date: 20161109
  Serious: Yes (Other)
  Sender: FDA-Public Use
  Company Number: FR-JNJFOC-20160813566

PATIENT
  Sex: Female

DRUGS (11)
  1. MICROLAX [Concomitant]
     Route: 065
  2. SOTALOL. [Concomitant]
     Active Substance: SOTALOL
     Route: 065
  3. TANGANIL [Concomitant]
     Active Substance: ACETYLLEUCINE
     Route: 065
  4. OLMETEC [Concomitant]
     Active Substance: OLMESARTAN MEDOXOMIL
     Route: 065
  5. XARELTO [Suspect]
     Active Substance: RIVAROXABAN
     Indication: ATRIAL FIBRILLATION
     Route: 048
     Dates: start: 20140703, end: 20160724
  6. CRESTOR [Concomitant]
     Active Substance: ROSUVASTATIN CALCIUM
     Route: 065
  7. EFFERALGAN [Concomitant]
     Active Substance: ACETAMINOPHEN
     Route: 065
  8. PIPERIDINE [Concomitant]
     Active Substance: PIPERIDINE
     Route: 065
  9. DUPHALAC [Concomitant]
     Active Substance: LACTULOSE
     Route: 065
  10. XARELTO [Suspect]
     Active Substance: RIVAROXABAN
     Indication: CEREBROVASCULAR ACCIDENT PROPHYLAXIS
     Route: 048
     Dates: start: 20140703, end: 20160724
  11. LEVOTHYROX [Concomitant]
     Active Substance: LEVOTHYROXINE
     Route: 065

REACTIONS (1)
  - Nocturia [Not Recovered/Not Resolved]

NARRATIVE: CASE EVENT DATE: 2014
